FAERS Safety Report 7415658-2 (Version None)
Quarter: 2011Q2

REPORT INFORMATION
  Report Type: 
  Country: None (occurrence: None)
  Receive Date: 20110414
  Receipt Date: 20110407
  Transmission Date: 20111010
  Serious: Yes (Hospitalization)
  Sender: FDA-Public Use
  Company Number: GB-ABBOTT-11P-167-0717672-00

PATIENT
  Sex: Male

DRUGS (5)
  1. WARFARIN [Concomitant]
     Indication: PRODUCT USED FOR UNKNOWN INDICATION
     Dosage: DAILY DOSE UNKNOWN
     Route: 048
     Dates: start: 20101110
  2. HUMIRA [Suspect]
     Indication: PSORIASIS
     Route: 058
     Dates: start: 20090908, end: 20100701
  3. TACROLIMUS [Concomitant]
     Indication: PRODUCT USED FOR UNKNOWN INDICATION
     Dosage: DAILY DOSE UNKNOWN
     Route: 048
     Dates: start: 20110125
  4. HYDROCORTISONE [Concomitant]
     Indication: PRODUCT USED FOR UNKNOWN INDICATION
     Dosage: DAILY DOSE UNKNOWN
     Dates: start: 20110125
  5. CLEXANE [Concomitant]
     Indication: PRODUCT USED FOR UNKNOWN INDICATION
     Dosage: DAILY DOSE UNKNOWN
     Route: 048
     Dates: start: 20101110

REACTIONS (1)
  - PULMONARY EMBOLISM [None]
